FAERS Safety Report 7734057-7 (Version None)
Quarter: 2011Q3

REPORT INFORMATION
  Report Type: 
  Country: None (occurrence: None)
  Receive Date: 20110907
  Receipt Date: 20110830
  Transmission Date: 20111222
  Serious: Yes (Other)
  Sender: FDA-Public Use
  Company Number: US-ROCHE-799476

PATIENT
  Sex: Male
  Weight: 5.9 kg

DRUGS (1)
  1. VALGANCICLOVIR HCL [Suspect]
     Indication: CONGENITAL CYTOMEGALOVIRUS INFECTION
     Dosage: LAST DOSE PRIOR TO SAE ON 24 AUGUST 2011
     Route: 048
     Dates: start: 20110602

REACTIONS (7)
  - THROMBOCYTOPENIA [None]
  - ANAEMIA [None]
  - CHOLESTASIS [None]
  - INTRAVENTRICULAR HAEMORRHAGE [None]
  - NEUTROPENIA [None]
  - HYPERBILIRUBINAEMIA [None]
  - PETECHIAE [None]
